FAERS Safety Report 4781003-4 (Version None)
Quarter: 2005Q3

REPORT INFORMATION
  Report Type: 
  Country: None (occurrence: None)
  Receive Date: 20050927
  Receipt Date: 20050927
  Transmission Date: 20060218
  Serious: Yes (Life-Threatening, Hospitalization)
  Sender: FDA-Public Use
  Company Number: None

PATIENT
  Age: 64 Year
  Sex: Female
  Weight: 78.4723 kg

DRUGS (11)
  1. DEPODUR [Suspect]
     Indication: POSTOPERATIVE ANALGESIA
     Dosage: 10MG   ONE TIME   EPIDURAL
     Route: 008
     Dates: start: 20050829, end: 20050829
  2. FENTANYL [Concomitant]
  3. MIDAZOLAM [Concomitant]
  4. DESFLURANE [Concomitant]
  5. PROPOFOL [Concomitant]
  6. LIDOCAINE [Concomitant]
  7. PRESERVATIVE FREE NSS [Concomitant]
  8. VECURONIUM [Concomitant]
  9. DECADRON [Concomitant]
  10. DOLASETRON [Concomitant]
  11. EPHEDRINE [Concomitant]

REACTIONS (4)
  - BRADYCARDIA [None]
  - POST PROCEDURAL COMPLICATION [None]
  - PROCEDURAL HYPOTENSION [None]
  - RESPIRATORY ARREST [None]
